FAERS Safety Report 5133110-4 (Version None)
Quarter: 2006Q4

REPORT INFORMATION
  Report Type: 
  Country: None (occurrence: None)
  Receive Date: 20061017
  Receipt Date: 20061010
  Transmission Date: 20070319
  Serious: Yes (Other)
  Sender: FDA-Public Use
  Company Number: 229736

PATIENT
  Age: 54 Year
  Sex: Female

DRUGS (4)
  1. MABTHERA(RITUXIMAB) CONC FOR SOLUTION FOR INFUSION [Suspect]
     Indication: SYSTEMIC LUPUS ERYTHEMATOSUS
     Dosage: 500 MG, Q2W, INTRAVENOUS
     Route: 042
  2. PREDNISOLONE [Concomitant]
  3. CORTICOSTEROID NOS (CORTICOSTEROID NOS) [Concomitant]
  4. METHYLPREDNISOLONE [Concomitant]

REACTIONS (12)
  - ALPHA HAEMOLYTIC STREPTOCOCCAL INFECTION [None]
  - AORTIC CALCIFICATION [None]
  - AORTIC STENOSIS [None]
  - B-LYMPHOCYTE COUNT DECREASED [None]
  - BLOOD URINE PRESENT [None]
  - CARDIAC MURMUR [None]
  - ENDOCARDITIS BACTERIAL [None]
  - GLUCOSE URINE PRESENT [None]
  - MITRAL VALVE INCOMPETENCE [None]
  - RASH ERYTHEMATOUS [None]
  - SYNOVITIS [None]
  - TRICUSPID VALVE INCOMPETENCE [None]
